FAERS Safety Report 19705730 (Version 6)
Quarter: 2022Q1

REPORT INFORMATION
  Report Type: Report from Study
  Country: AT (occurrence: AT)
  Receive Date: 20210817
  Receipt Date: 20220119
  Transmission Date: 20220424
  Serious: Yes (Hospitalization, Other)
  Sender: FDA-Public Use
  Company Number: AT-CELLTRION INC.-2019AT028789

PATIENT

DRUGS (111)
  1. TRASTUZUMAB [Suspect]
     Active Substance: TRASTUZUMAB
     Indication: Breast cancer metastatic
     Dosage: 712 MG EVERY 3 WEEKS, MOST RECENT DOSE PRIOR TO THE EVENT: 14/JUL/2017, 08/JUN/2018, 23/JUL/2018, 08
     Route: 042
     Dates: start: 20170324
  2. TRASTUZUMAB [Suspect]
     Active Substance: TRASTUZUMAB
     Dosage: 712 MG EVERY 3 WEEKS, MOST RECENT DOSE PRIOR TO THE EVENT: 14/JUL/2017, 08/JUN/2018, 23/JUL/2018, 08
     Route: 042
     Dates: start: 20170324, end: 20170324
  3. TRASTUZUMAB [Suspect]
     Active Substance: TRASTUZUMAB
     Dosage: 438 MG
     Route: 042
     Dates: start: 20180926
  4. TRASTUZUMAB [Suspect]
     Active Substance: TRASTUZUMAB
     Dosage: 408 MG EVERY 3 WEEKS (ON 24/APR/2020, MOST RECENT DOSE)
     Route: 041
     Dates: start: 20181219, end: 20210424
  5. TRASTUZUMAB [Suspect]
     Active Substance: TRASTUZUMAB
     Dosage: 712 MG EVERY 3 WEEKS, MOST RECENT DOSE PRIOR TO THE EVENT: 14/JUL/2017, 08/JUN/2018, 23/JUL/2018, 08
     Route: 041
     Dates: start: 20170324, end: 20170324
  6. TRASTUZUMAB [Suspect]
     Active Substance: TRASTUZUMAB
     Dosage: 438 MG EVERY 3 WEEKS
     Route: 041
     Dates: start: 20181017, end: 20181017
  7. TRASTUZUMAB [Suspect]
     Active Substance: TRASTUZUMAB
     Dosage: 420 MG EVERY 3 WEEKS
     Route: 041
     Dates: start: 20181128, end: 20181128
  8. TRASTUZUMAB [Suspect]
     Active Substance: TRASTUZUMAB
     Dosage: 438 MG EVERY 3 WEEKS
     Route: 041
     Dates: start: 20180926
  9. TRASTUZUMAB [Suspect]
     Active Substance: TRASTUZUMAB
     Dosage: 438 MG, EVERY 3 WEEKS
     Route: 042
     Dates: start: 20180926, end: 20180926
  10. TRASTUZUMAB [Suspect]
     Active Substance: TRASTUZUMAB
     Dosage: 474 MG, EVERY 3 WEEKS
     Route: 042
     Dates: start: 20171213, end: 20180514
  11. TRASTUZUMAB [Suspect]
     Active Substance: TRASTUZUMAB
     Dosage: 420 MG EVERY 3 WEEKS
     Route: 042
     Dates: start: 20181128, end: 20181128
  12. TRASTUZUMAB [Suspect]
     Active Substance: TRASTUZUMAB
     Dosage: 480 MG, EVERY 3 WEEKS
     Route: 042
     Dates: start: 20170828, end: 20171030
  13. TRASTUZUMAB [Suspect]
     Active Substance: TRASTUZUMAB
     Dosage: 534 MG, EVERY 3 WEEKS
     Route: 042
     Dates: start: 20170714, end: 20170804
  14. TRASTUZUMAB [Suspect]
     Active Substance: TRASTUZUMAB
     Dosage: 462 MG, EVERY 3 WEEKS
     Route: 042
     Dates: start: 20180608, end: 20180608
  15. TRASTUZUMAB [Suspect]
     Active Substance: TRASTUZUMAB
     Dosage: 450 MG, EVERY 3 WEEKS
     Route: 042
     Dates: start: 20180723, end: 20180904
  16. TRASTUZUMAB [Suspect]
     Active Substance: TRASTUZUMAB
     Dosage: 534 MG, EVERY 3 WEEKS
     Route: 042
     Dates: start: 20170414, end: 20170619
  17. TRASTUZUMAB [Suspect]
     Active Substance: TRASTUZUMAB
     Dosage: 712 MG, EVERY 3 WEEKS, MOST RECENT DOSE PRIOR TO THE EVENT: 14/JUL/2017
     Route: 042
     Dates: start: 20170324, end: 20170324
  18. TRASTUZUMAB [Suspect]
     Active Substance: TRASTUZUMAB
     Dosage: 712 MG, EVERY 3 WEEKS
     Route: 042
     Dates: start: 20170324, end: 20170324
  19. TRASTUZUMAB [Suspect]
     Active Substance: TRASTUZUMAB
     Dosage: EVERY 3 WEEKS
     Route: 041
     Dates: start: 20181017, end: 20181017
  20. TRASTUZUMAB [Suspect]
     Active Substance: TRASTUZUMAB
     Dosage: EVERY 3 WEEKS
     Route: 041
     Dates: start: 20181219
  21. TRASTUZUMAB [Suspect]
     Active Substance: TRASTUZUMAB
     Dosage: EVERY 3 WEEKS
     Route: 041
     Dates: start: 20200515
  22. TRASTUZUMAB [Suspect]
     Active Substance: TRASTUZUMAB
     Dosage: EVERY 3 WEEKS
     Route: 041
     Dates: start: 20181128, end: 20181128
  23. TRASTUZUMAB [Suspect]
     Active Substance: TRASTUZUMAB
     Indication: Breast cancer metastatic
     Dosage: 438 MG EVERY 3 WEEKS
     Route: 041
     Dates: start: 20181017, end: 20181017
  24. TRASTUZUMAB [Suspect]
     Active Substance: TRASTUZUMAB
     Dosage: 420 MG EVERY 3 WEEKS
     Route: 041
     Dates: start: 20181128, end: 20181128
  25. TRASTUZUMAB [Suspect]
     Active Substance: TRASTUZUMAB
     Dosage: 408 MG EVERY 3 WEEKS (ON 24/APR/2020, MOST RECENT DOSE)
     Route: 041
     Dates: start: 20181219, end: 20200424
  26. TRASTUZUMAB [Suspect]
     Active Substance: TRASTUZUMAB
     Dosage: 438 MG
     Route: 042
     Dates: start: 20180926
  27. TRASTUZUMAB [Suspect]
     Active Substance: TRASTUZUMAB
     Dosage: 712 MG EVERY 3 WEEKS (MOST RECENT DOSE PRIOR TO THE EVENT: 14/JUL/2017, 08/JUN/2018, 23/JUL/2018, 08
     Route: 042
     Dates: start: 20170324, end: 20170324
  28. TRASTUZUMAB [Suspect]
     Active Substance: TRASTUZUMAB
     Dosage: 450 MG EVERY 3 WEEKS (ONGOING)
     Route: 042
     Dates: start: 20200515
  29. TRASTUZUMAB [Suspect]
     Active Substance: TRASTUZUMAB
     Dosage: 462 MG EVERY 3 WEEKS
     Route: 042
     Dates: start: 20180608, end: 20180608
  30. TRASTUZUMAB [Suspect]
     Active Substance: TRASTUZUMAB
     Dosage: 438 MG EVERY 3 WEEKS
     Route: 042
     Dates: start: 20180926, end: 20180926
  31. TRASTUZUMAB [Suspect]
     Active Substance: TRASTUZUMAB
     Dosage: 534 MG EVERY 3 WEEKS
     Route: 042
     Dates: start: 20170414, end: 20170619
  32. TRASTUZUMAB [Suspect]
     Active Substance: TRASTUZUMAB
     Dosage: 712 MG EVERY 3 WEEKS
     Route: 042
     Dates: start: 20170324, end: 20170324
  33. TRASTUZUMAB [Suspect]
     Active Substance: TRASTUZUMAB
     Dosage: 480 MG EVERY 3 WEEKS
     Route: 042
     Dates: start: 20170828, end: 20171030
  34. TRASTUZUMAB [Suspect]
     Active Substance: TRASTUZUMAB
     Dosage: 534 MG EVERY 3 WEEKS
     Route: 042
     Dates: start: 20170714, end: 20170804
  35. TRASTUZUMAB [Suspect]
     Active Substance: TRASTUZUMAB
     Dosage: 450 MG EVERY 3 WEEKS
     Route: 042
     Dates: start: 20180723, end: 20180904
  36. TRASTUZUMAB [Suspect]
     Active Substance: TRASTUZUMAB
     Dosage: 474 MG EVERY 3 WEEKS
     Route: 042
     Dates: start: 20171213, end: 20180514
  37. TRASTUZUMAB [Suspect]
     Active Substance: TRASTUZUMAB
     Dosage: 408 MG EVERY 3 WEEKS (ON 24/APR/2020, MOST RECENT DOSE)
     Route: 041
     Dates: start: 20181219, end: 20200424
  38. TRASTUZUMAB [Suspect]
     Active Substance: TRASTUZUMAB
     Dosage: 712 MG EVERY 3 WEEKS (MOST RECENT DOSE PRIOR TO THE EVENT:07/NOV/2018)
     Route: 042
     Dates: start: 20170324
  39. TRASTUZUMAB [Suspect]
     Active Substance: TRASTUZUMAB
     Dosage: 408 MG, EVERY 3 WEEKS (ON 24/APR/2020, MOST RECENT DOSE )
     Route: 041
     Dates: start: 20210424
  40. TRASTUZUMAB [Suspect]
     Active Substance: TRASTUZUMAB
     Dosage: UNK, EVERY 3 WEEKS
     Route: 041
     Dates: start: 20181219
  41. TRASTUZUMAB [Suspect]
     Active Substance: TRASTUZUMAB
     Dosage: UNK, EVERY 3 WEEKS
     Route: 041
     Dates: start: 20181219
  42. TRASTUZUMAB [Suspect]
     Active Substance: TRASTUZUMAB
     Dosage: 408 MG, EVERY 3 WEEKS (ON 24/APR/2020, MOST RECENT DOSE
     Route: 041
     Dates: end: 20210424
  43. TRASTUZUMAB [Suspect]
     Active Substance: TRASTUZUMAB
     Dosage: UNK
     Route: 041
     Dates: start: 20181017, end: 20181017
  44. TRASTUZUMAB [Suspect]
     Active Substance: TRASTUZUMAB
     Dosage: UNK
     Route: 041
     Dates: start: 20181128, end: 20181128
  45. TRASTUZUMAB [Suspect]
     Active Substance: TRASTUZUMAB
     Dosage: 408 MG EVERY 3 WEEKS (ON 24/APR/2020, MOST RECENT DOSE)
     Route: 041
     Dates: start: 20181219
  46. TRASTUZUMAB [Suspect]
     Active Substance: TRASTUZUMAB
     Dosage: 408 MG, EVERY 3 WEEKS (ON 24/APR/2020, MOST RECENT DOSE
     Route: 042
     Dates: end: 20210424
  47. ANASTROZOLE [Suspect]
     Active Substance: ANASTROZOLE
     Indication: Breast cancer metastatic
     Dosage: 1 MG, QD (MOST RECENT DOSE PRIOR TO AE 14/MAY/2018) CUMULATIVE DOSE TO FIRST REACTION: 469 MG
     Route: 048
     Dates: start: 20170324
  48. ANASTROZOLE [Suspect]
     Active Substance: ANASTROZOLE
     Dosage: 1 MG, QD (MOST RECENT DOSE PRIOR TO AE 14/MAY/2018) CUMULATIVE DOSE TO FIRST REACTION: 463 MG
     Route: 048
     Dates: start: 20170324
  49. ANASTROZOLE [Suspect]
     Active Substance: ANASTROZOLE
     Dosage: 1 MG, 1X/DAY, MOST RECENT DOSE PRIOR TO AE 14/MAY/2018
     Route: 048
     Dates: start: 20170324
  50. PERTUZUMAB [Suspect]
     Active Substance: PERTUZUMAB
     Indication: Breast cancer
     Dosage: 840 MG, EVERY 3 WEEKS (MOST RECENT DOSE PRIOR TO THE EVENT: 14/JUL/2017, 13/DEC/2017, 23/JUL/2018
     Route: 042
     Dates: start: 20170324, end: 20170324
  51. PERTUZUMAB [Suspect]
     Active Substance: PERTUZUMAB
     Indication: Breast cancer metastatic
     Dosage: 420 MG EVERY 3 WEEKS (ONGOING)
     Route: 042
     Dates: start: 20180723
  52. PERTUZUMAB [Suspect]
     Active Substance: PERTUZUMAB
     Dosage: 420 MG EVERY 3 WEEKS
     Route: 042
     Dates: start: 20171213, end: 20180608
  53. PERTUZUMAB [Suspect]
     Active Substance: PERTUZUMAB
     Dosage: 420 MG EVERY 3 WEEKS
     Route: 042
     Dates: start: 20170414, end: 20170619
  54. PERTUZUMAB [Suspect]
     Active Substance: PERTUZUMAB
     Dosage: 420 MG EVERY 3 WEEKS
     Route: 042
     Dates: start: 20170714, end: 20171030
  55. PERTUZUMAB [Suspect]
     Active Substance: PERTUZUMAB
     Dosage: 840 MG, EVERY 3 WEEKS (MOST RECENT DOSE PRIOR TO THE EVENT: 14/JUL/2017, 13/DEC/2017, 23/JUL/2018
     Route: 042
     Dates: start: 20170714, end: 20171030
  56. PERTUZUMAB [Suspect]
     Active Substance: PERTUZUMAB
     Dosage: 840 MG, EVERY 3 WEEKS (MOST RECENT DOSE PRIOR TO THE EVENT: 14/JUL/2017, 13/DEC/2017, 23/JUL/2018
     Route: 042
     Dates: start: 20170414, end: 20170619
  57. PERTUZUMAB [Suspect]
     Active Substance: PERTUZUMAB
     Dosage: 840 MG, EVERY 3 WEEKS (MOST RECENT DOSE PRIOR TO THE EVENT: 14/JUL/2017, 13/DEC/2017, 23/JUL/2018
     Route: 042
     Dates: start: 20171213, end: 20180608
  58. PERTUZUMAB [Suspect]
     Active Substance: PERTUZUMAB
     Dosage: 420 MG, WEEKLY
     Route: 042
     Dates: start: 20170414, end: 20170619
  59. PERTUZUMAB [Suspect]
     Active Substance: PERTUZUMAB
     Dosage: 420 MG, WEEKLY
     Route: 042
     Dates: start: 20170714, end: 20171030
  60. PERTUZUMAB [Suspect]
     Active Substance: PERTUZUMAB
     Dosage: 420 MG, WEEKLY
     Route: 042
     Dates: start: 20171213, end: 20180608
  61. PERTUZUMAB [Suspect]
     Active Substance: PERTUZUMAB
     Dosage: 420 MG, WEEKLY
     Route: 042
     Dates: start: 20180723
  62. PERTUZUMAB [Suspect]
     Active Substance: PERTUZUMAB
     Dosage: 840 MG, EVERY 3 WEEKS (MOST RECENT DOSE PRIOR TO THE EVENT: 14/JUL/2017, 13/DEC/2017, 23/JUL/2018
     Route: 042
     Dates: start: 20170714
  63. DOCETAXEL [Suspect]
     Active Substance: DOCETAXEL
     Indication: Breast cancer metastatic
     Dosage: 137 MG, EVERY 3 WEEKS; DATE OF MOST RECENT DOSE: 23/JUL/2018
     Route: 042
     Dates: start: 20180608, end: 20180608
  64. DOCETAXEL [Suspect]
     Active Substance: DOCETAXEL
     Dosage: 106.22 MG EVERY 3 WEEKS
     Route: 042
     Dates: start: 20181017, end: 20181017
  65. DOCETAXEL [Suspect]
     Active Substance: DOCETAXEL
     Dosage: 106 MG EVERY 3 WEEKS
     Route: 042
     Dates: start: 20181017, end: 20181017
  66. DOCETAXEL [Suspect]
     Active Substance: DOCETAXEL
     Dosage: 132.78 MG EVERY 3 WEEKS
     Route: 042
     Dates: start: 20180926, end: 20180926
  67. DOCETAXEL [Suspect]
     Active Substance: DOCETAXEL
     Dosage: 134.32 MG EVERY 3 WEEKS
     Route: 042
     Dates: start: 20180723, end: 20180904
  68. DOCETAXEL [Suspect]
     Active Substance: DOCETAXEL
     Dosage: 135 MG EVERY 3 WEEKS
     Route: 042
     Dates: start: 20180723, end: 20180904
  69. DOCETAXEL [Suspect]
     Active Substance: DOCETAXEL
     Dosage: 133 MG EVERY 3 WEEKS
     Route: 042
     Dates: start: 20180926, end: 20180926
  70. DOCETAXEL [Suspect]
     Active Substance: DOCETAXEL
     Dosage: 137 MG, EVERY 3 WEEKS; MOST RECENT DOSE PRIOR TO THE EVENT: 17/OCT/2018
     Route: 042
     Dates: start: 20180608
  71. ARIMIDEX [Suspect]
     Active Substance: ANASTROZOLE
     Indication: Breast cancer
     Dosage: 1 MG/DAY/MOST RECENT DOSE OF ANASTROZOL PRIOR TO THE EVENT: 14/MAY/2018
     Route: 048
     Dates: start: 20170324, end: 20180514
  72. FASLODEX [Suspect]
     Active Substance: FULVESTRANT
     Indication: Breast cancer
     Dosage: EVERY 2 WEEKS (MOST RECENT DOSE OF FULVESTRANT PRIOR TO THE EVENT: 26/DEC/2018)
     Route: 030
     Dates: start: 20181128
  73. FULVESTRANT [Suspect]
     Active Substance: FULVESTRANT
     Indication: Breast cancer metastatic
     Dosage: 500 MG, Q2WEEKS; MOST RECENT DOSE PRIOR TO THE EVENT: 26/DEC/2018
     Route: 030
     Dates: start: 20181128
  74. FULVESTRANT [Suspect]
     Active Substance: FULVESTRANT
     Dosage: 500 MG, Q2WEEKS (ONGOING)
     Route: 030
     Dates: start: 20181226
  75. FULVESTRANT [Suspect]
     Active Substance: FULVESTRANT
     Indication: Breast cancer metastatic
     Dosage: 500 MG, Q2WEEKS
     Route: 030
     Dates: start: 20181128
  76. FULVESTRANT [Suspect]
     Active Substance: FULVESTRANT
     Dosage: 500 MG, Q2WEEKS
     Route: 030
     Dates: start: 20181226
  77. TAXOTERE [Suspect]
     Active Substance: DOCETAXEL
     Indication: Breast cancer
     Dosage: 137 MG EVERY 3 WEEKS, (DATE OF MOST RECENT DOSE: 23/JUL/2018)/OCT/2018)/ EVERY 3 WEEKS/MOST RECENT D
     Route: 042
     Dates: start: 20180608
  78. METHYLPREDNISOLONE [Concomitant]
     Active Substance: METHYLPREDNISOLONE
     Dosage: ONGOING = CHECKED
     Dates: start: 20191210
  79. CORTISONE ACETATE [Concomitant]
     Active Substance: CORTISONE ACETATE
     Dosage: ONGOING = NOT CHECKED
     Route: 065
     Dates: start: 20180608, end: 20180608
  80. KYTRIL [Concomitant]
     Active Substance: GRANISETRON HYDROCHLORIDE
     Dosage: ONGOING = CHECKED
     Route: 065
     Dates: start: 20180608, end: 20181017
  81. XGEVA [Concomitant]
     Active Substance: DENOSUMAB
     Dosage: UNK
     Dates: start: 20181017
  82. XGEVA [Concomitant]
     Active Substance: DENOSUMAB
     Dosage: UNK
     Route: 065
     Dates: start: 20170505, end: 20180329
  83. DIMETHINDENE [Concomitant]
     Active Substance: DIMETHINDENE
     Dosage: ONGOING = CHECKED
     Route: 065
     Dates: start: 20170414
  84. DIMETHINDENE [Concomitant]
     Active Substance: DIMETHINDENE
     Dosage: UNK
     Dates: start: 20170414
  85. PANTOPRAZOLE [Concomitant]
     Active Substance: PANTOPRAZOLE
     Dosage: ONGOING = CHECKED
     Route: 065
  86. PANTOPRAZOLE [Concomitant]
     Active Substance: PANTOPRAZOLE
     Dosage: UNK
  87. HYDROCHLOROTHIAZIDE\RAMIPRIL [Concomitant]
     Active Substance: HYDROCHLOROTHIAZIDE\RAMIPRIL
     Dosage: ONGOING = CHECKED
     Route: 065
  88. HYDROCHLOROTHIAZIDE\RAMIPRIL [Concomitant]
     Active Substance: HYDROCHLOROTHIAZIDE\RAMIPRIL
     Dosage: UNK
  89. HYDROCHLOROTHIAZIDE\RAMIPRIL [Concomitant]
     Active Substance: HYDROCHLOROTHIAZIDE\RAMIPRIL
     Dosage: UNK
     Dates: start: 20200424
  90. RANITIDINE HYDROCHLORIDE [Concomitant]
     Active Substance: RANITIDINE HYDROCHLORIDE
     Dosage: UNK
     Route: 065
     Dates: start: 20170414, end: 20191119
  91. DEXABENE [Concomitant]
     Dosage: ONGOING = CHECKED
     Dates: start: 20181107
  92. DEXABENE [Concomitant]
     Dosage: UNK
     Dates: start: 20181107
  93. ASPIRIN [Concomitant]
     Active Substance: ASPIRIN
     Indication: Hypertension
     Dosage: UNK
     Route: 065
     Dates: start: 20171120, end: 20190615
  94. DEXAMETHASONE [Concomitant]
     Active Substance: DEXAMETHASONE
     Dosage: ONGOING = NOT CHECKED
     Route: 065
     Dates: start: 20180723, end: 20181017
  95. DEXAMETHASONE [Concomitant]
     Active Substance: DEXAMETHASONE
     Dosage: ONGOING = CHECKED
     Dates: start: 20181017
  96. DEXAMETHASONE [Concomitant]
     Active Substance: DEXAMETHASONE
     Dosage: ONGOING = NOT CHECKED
     Dates: start: 20181017
  97. VIBRAMYCIN [Concomitant]
     Active Substance: DOXYCYCLINE
     Indication: Sinusitis
     Dosage: ONGOING = NOT CHECKED
     Route: 065
     Dates: start: 20180417, end: 20180615
  98. CALCIUM CARBONATE\CHOLECALCIFEROL [Concomitant]
     Active Substance: CALCIUM CARBONATE\CHOLECALCIFEROL
     Dosage: UNK
     Route: 065
     Dates: start: 20170505, end: 20190615
  99. BISOPROLOL FUMARATE [Concomitant]
     Active Substance: BISOPROLOL FUMARATE
     Indication: Hypertension
     Dosage: ONGOING = NOT CHECKED
     Route: 065
     Dates: start: 20171213, end: 20180715
  100. PANTOPRAZOLE [Concomitant]
     Active Substance: PANTOPRAZOLE
     Dosage: ONGOING = CHECKED
  101. AVELOX [Concomitant]
     Active Substance: MOXIFLOXACIN HYDROCHLORIDE
     Indication: Dyspnoea exertional
     Dosage: ONGOING = NOT CHECKED
     Route: 065
     Dates: start: 20180712, end: 20180722
  102. DEXAMETHASONE [Concomitant]
     Active Substance: DEXAMETHASONE
     Dosage: UNK
  103. DEXAMETHASONE [Concomitant]
     Active Substance: DEXAMETHASONE
     Dosage: UNK
     Route: 065
     Dates: start: 20170414, end: 20180514
  104. FOSTER [Concomitant]
     Active Substance: BECLOMETHASONE\FORMOTEROL
     Indication: Dyspnoea
     Dosage: ONGOING = CHECKED
     Route: 065
     Dates: start: 20171120
  105. LOVENOX [Concomitant]
     Active Substance: ENOXAPARIN SODIUM
     Indication: Dyspnoea exertional
     Dosage: ONGOING = NOT CHECKED
     Route: 065
     Dates: start: 20180615, end: 20180713
  106. MEROPENEM [Concomitant]
     Active Substance: MEROPENEM
     Indication: Dyspnoea exertional
     Dosage: ONGOING = NOT CHECKED
     Route: 065
     Dates: start: 20180705, end: 20180712
  107. ACETAMINOPHEN [Concomitant]
     Active Substance: ACETAMINOPHEN
     Dosage: ONGOING = CHECKED
     Route: 065
     Dates: start: 20180715
  108. POLYETHYLENE GLYCOL 3350\POTASSIUM CHLORIDE\SODIUM BICARBONATE\SODIUM [Concomitant]
     Active Substance: POLYETHYLENE GLYCOL 3350\POTASSIUM CHLORIDE\SODIUM BICARBONATE\SODIUM CHLORIDE
     Dosage: ONGOING = CHECKED
     Route: 065
     Dates: start: 20180715
  109. NOVALGINE (AUSTRIA) [Concomitant]
     Indication: Dyspnoea exertional
     Dosage: ONGOING = CHECKED
     Route: 065
     Dates: start: 20180715
  110. NOVALGIN (AUSTRIA) [Concomitant]
     Indication: Dyspnoea exertional
     Dosage: UNK
     Dates: start: 20180715
  111. PANTOPRAZOLE [Concomitant]
     Active Substance: PANTOPRAZOLE

REACTIONS (20)
  - Dyspnoea exertional [Recovered/Resolved]
  - Polyneuropathy [Unknown]
  - Condition aggravated [Not Recovered/Not Resolved]
  - Flank pain [Recovered/Resolved]
  - Ill-defined disorder [Recovered/Resolved]
  - Renal pain [Recovered/Resolved]
  - Diarrhoea [Recovered/Resolved]
  - Dyspnoea [Recovered/Resolved]
  - Ejection fraction decreased [Recovered/Resolved]
  - Ejection fraction decreased [Recovered/Resolved]
  - Hypertension [Recovered/Resolved]
  - Pain [Recovered/Resolved]
  - Paraesthesia [Recovered/Resolved]
  - Pyrexia [Not Recovered/Not Resolved]
  - Sinusitis [Recovered/Resolved]
  - Fatigue [Recovered/Resolved]
  - Dysgeusia [Recovered/Resolved]
  - Dyspnoea [Recovered/Resolved]
  - Hypertension [Recovering/Resolving]
  - Underdose [Unknown]

NARRATIVE: CASE EVENT DATE: 20171030
